FAERS Safety Report 25995607 (Version 1)
Quarter: 2025Q4

REPORT INFORMATION
  Report Type: Spontaneous
  Country: US (occurrence: US)
  Receive Date: 20251104
  Receipt Date: 20251104
  Transmission Date: 20260118
  Serious: Yes (Death, Other)
  Sender: SANOFI AVENTIS
  Company Number: US-SANOFI-02706228

PATIENT
  Sex: Male

DRUGS (1)
  1. CEREZYME [Suspect]
     Active Substance: IMIGLUCERASE
     Indication: Gaucher^s disease
     Dosage: 5 DF, QOW

REACTIONS (5)
  - Splenectomy [Unknown]
  - Death [Fatal]
  - Bone pain [Unknown]
  - Fatigue [Unknown]
  - Osteoarthritis [Unknown]
